FAERS Safety Report 6772382-7 (Version None)
Quarter: 2010Q2

REPORT INFORMATION
  Report Type: 
  Country: None (occurrence: None)
  Receive Date: 20100616
  Receipt Date: 20091208
  Transmission Date: 20101027
  Serious: No
  Sender: FDA-Public Use
  Company Number: US-ASTRAZENECA-2009SE30848

PATIENT
  Age: 74 Year
  Sex: Female
  Weight: 80.7 kg

DRUGS (4)
  1. PULMICORT [Suspect]
     Indication: BRONCHITIS
     Dosage: 0.25/2ML
     Route: 055
     Dates: start: 20080101, end: 20090101
  2. PULMICORT [Suspect]
     Dosage: LOWERED HER DOSE TO ONCE A DAY IN THE AM
     Route: 055
  3. PULMICORT [Suspect]
     Dosage: 180 MCG
     Route: 055
     Dates: start: 20091101
  4. ALBUTEROL [Concomitant]

REACTIONS (4)
  - DYSPHAGIA [None]
  - THROAT IRRITATION [None]
  - THROAT TIGHTNESS [None]
  - WEIGHT INCREASED [None]
